FAERS Safety Report 9389072 (Version 6)
Quarter: 2014Q4

REPORT INFORMATION
  Report Type: Report from Study
  Country: JP (occurrence: JP)
  Receive Date: 20130708
  Receipt Date: 20141222
  Transmission Date: 20150529
  Serious: Yes (Hospitalization, Other)
  Sender: FDA-Public Use
  Company Number: JP-GILEAD-2013-0077747

PATIENT
  Age: 69 Year
  Sex: Female
  Weight: 43 kg

DRUGS (18)
  1. VITAMINS NOS [Suspect]
     Active Substance: VITAMINS
     Indication: PRODUCT USED FOR UNKNOWN INDICATION
     Dosage: UNK
     Route: 048
  2. CALCITAROL [Concomitant]
     Dosage: UNK
     Route: 048
     Dates: start: 20120816, end: 20130829
  3. REVATIO [Suspect]
     Active Substance: SILDENAFIL CITRATE
     Indication: PULMONARY HYPERTENSION
     Dosage: UNK
     Route: 048
     Dates: start: 20130524, end: 20130604
  4. AVAPRO [Concomitant]
     Active Substance: IRBESARTAN
     Dosage: UNK
     Route: 048
     Dates: end: 20140814
  5. AVAPRO [Concomitant]
     Active Substance: IRBESARTAN
     Route: 048
  6. DIGOXIN. [Concomitant]
     Active Substance: DIGOXIN
     Dosage: UNK
     Route: 048
     Dates: end: 20140814
  7. DIART [Concomitant]
     Active Substance: AZOSEMIDE
     Dosage: UNK
     Dates: start: 20130708, end: 20140814
  8. PREDNISOLONE. [Concomitant]
     Active Substance: PREDNISOLONE
     Dosage: UNK
     Dates: end: 20140814
  9. AMBRISENTAN [Suspect]
     Active Substance: AMBRISENTAN
     Indication: PULMONARY ARTERIAL HYPERTENSION
     Dosage: 7.5 MG, QD
     Route: 048
     Dates: start: 20120610, end: 20131114
  10. AMBRISENTAN [Suspect]
     Active Substance: AMBRISENTAN
     Dosage: 5 MG, QD
     Route: 048
     Dates: start: 20120407, end: 20120609
  11. REVATIO [Suspect]
     Active Substance: SILDENAFIL CITRATE
     Dosage: UNK
     Route: 065
  12. ALDACTONE [Concomitant]
     Active Substance: SPIRONOLACTONE
     Dosage: UNK
     Route: 048
     Dates: end: 20140708
  13. TERIBONE [Concomitant]
     Active Substance: TERIPARATIDE ACETATE
     Dosage: UNK
     Route: 058
     Dates: start: 20130803, end: 20140809
  14. AMBRISENTAN [Suspect]
     Active Substance: AMBRISENTAN
     Dosage: 2.5 MG, QD
     Route: 048
     Dates: start: 20120331, end: 20120406
  15. AMBRISENTAN [Suspect]
     Active Substance: AMBRISENTAN
     Dosage: 10 MG, QD
     Route: 065
     Dates: start: 20131115, end: 20140814
  16. WARFARIN [Suspect]
     Active Substance: WARFARIN
     Indication: PRODUCT USED FOR UNKNOWN INDICATION
     Dosage: UNK
     Route: 048
  17. AVAPRO [Concomitant]
     Active Substance: IRBESARTAN
     Route: 048
  18. AVAPRO [Concomitant]
     Active Substance: IRBESARTAN
     Dosage: UNK
     Route: 048
     Dates: end: 20140814

REACTIONS (3)
  - Osteoporosis [Unknown]
  - Platelet count decreased [Recovering/Resolving]
  - Anaemia [Recovered/Resolved]

NARRATIVE: CASE EVENT DATE: 20130117
